FAERS Safety Report 4948537-0 (Version None)
Quarter: 2006Q1

REPORT INFORMATION
  Report Type: 
  Country: None (occurrence: None)
  Receive Date: 20060320
  Receipt Date: 20051202
  Transmission Date: 20060701
  Serious: Yes (Hospitalization, Other)
  Sender: FDA-Public Use
  Company Number: US-MERCK-0512USA00501

PATIENT
  Age: 78 Year
  Sex: Male

DRUGS (1)
  1. VIOXX [Suspect]
     Indication: OSTEOARTHRITIS
     Route: 048
     Dates: start: 19991201, end: 20010501

REACTIONS (20)
  - ARTHRALGIA [None]
  - ATRIOVENTRICULAR BLOCK [None]
  - ATRIOVENTRICULAR BLOCK COMPLETE [None]
  - BACK PAIN [None]
  - CAROTID ARTERY STENOSIS [None]
  - CEREBROVASCULAR ACCIDENT [None]
  - CHEST PAIN [None]
  - CORONARY ARTERY DISEASE [None]
  - CYST [None]
  - DEMENTIA [None]
  - DIASTOLIC DYSFUNCTION [None]
  - DIZZINESS [None]
  - EPIDIDYMITIS [None]
  - FLUID RETENTION [None]
  - GROIN PAIN [None]
  - HEMIPARESIS [None]
  - HYPERTENSION [None]
  - OSTEOARTHRITIS [None]
  - PROSTATE CANCER [None]
  - PROSTATIC SPECIFIC ANTIGEN INCREASED [None]
